FAERS Safety Report 15356050 (Version 2)
Quarter: 2018Q3

REPORT INFORMATION
  Report Type: Spontaneous
  Country: US (occurrence: US)
  Receive Date: 20180906
  Receipt Date: 20180911
  Transmission Date: 20181010
  Serious: No
  Sender: FDA-Public Use
  Company Number: US-HIKMA PHARMACEUTICALS USA INC.-US-H14001-18-02135

PATIENT
  Sex: Female
  Weight: 59.93 kg

DRUGS (2)
  1. METHOTREXATE TABLET [Suspect]
     Active Substance: METHOTREXATE
     Indication: RHEUMATOID ARTHRITIS
     Route: 048
     Dates: end: 2016
  2. METHOTREXATE INJECTION [Suspect]
     Active Substance: METHOTREXATE
     Indication: RHEUMATOID ARTHRITIS
     Dosage: UNITS NOT SPECIFIED
     Route: 065
     Dates: start: 2016, end: 2017

REACTIONS (1)
  - Drug ineffective [Recovered/Resolved]
